FAERS Safety Report 4727048-1 (Version None)
Quarter: 2005Q3

REPORT INFORMATION
  Report Type: 
  Country: None (occurrence: None)
  Receive Date: 20050726
  Receipt Date: 20050708
  Transmission Date: 20060218
  Serious: Yes (Death, Life-Threatening, Hospitalization)
  Sender: FDA-Public Use
  Company Number: 200416160BCC

PATIENT
  Age: 66 Year
  Sex: Male
  Weight: 95.2554 kg

DRUGS (18)
  1. ALEVE [Suspect]
     Indication: HEADACHE
     Dosage: 220 MG, ONCE, ORAL
     Route: 048
     Dates: start: 20000402
  2. ALEVE [Suspect]
     Indication: SINUS HEADACHE
     Dosage: 220 MG, ONCE, ORAL
     Route: 048
     Dates: start: 20000402
  3. DISALCID [Concomitant]
  4. ENBREL [Concomitant]
  5. PREDNISONE [Concomitant]
  6. PROPOXYPHENE NAPSYLATE W/ ACETAMINOPHEN [Concomitant]
  7. METOPROLOL [Concomitant]
  8. SALICYLATE [Concomitant]
  9. FOLIC ACID [Concomitant]
  10. ASPIRIN [Concomitant]
  11. LOVASTATIN [Concomitant]
  12. LOTENSIN [Concomitant]
  13. PRILOSEC [Concomitant]
  14. CALCIUM GLUCONATE [Concomitant]
  15. VITAMIN D [Concomitant]
  16. IRON [Concomitant]
  17. HYDROCHLOROTHIAZIDE [Concomitant]
  18. LISINOPRIL [Concomitant]

REACTIONS (21)
  - ANOXIC ENCEPHALOPATHY [None]
  - ATRIOVENTRICULAR BLOCK COMPLETE [None]
  - BRAIN DAMAGE [None]
  - CARDIAC ARREST [None]
  - CARDIOGENIC SHOCK [None]
  - CARDIOMEGALY [None]
  - CONVULSION [None]
  - CORONARY ARTERY ATHEROSCLEROSIS [None]
  - DYSPNOEA [None]
  - ELECTROCARDIOGRAM Q WAVES [None]
  - FALL [None]
  - FATIGUE [None]
  - FEELING ABNORMAL [None]
  - HEADACHE [None]
  - INTUBATION COMPLICATION [None]
  - LOSS OF CONSCIOUSNESS [None]
  - MALAISE [None]
  - MYOCARDIAL INFARCTION [None]
  - PUPIL FIXED [None]
  - SINUS TACHYCARDIA [None]
  - VENTRICULAR FIBRILLATION [None]
